FAERS Safety Report 12669594 (Version 1)
Quarter: 2016Q3

REPORT INFORMATION
  Report Type: Spontaneous
  Country: FR (occurrence: FR)
  Receive Date: 20160819
  Receipt Date: 20160819
  Transmission Date: 20161109
  Serious: Yes (Congenital Anomaly, Other)
  Sender: FDA-Public Use
  Company Number: FR-JNJFOC-20160809965

PATIENT
  Age: 0 Year
  Sex: Male
  Weight: 1.77 kg

DRUGS (6)
  1. SERESTA [Suspect]
     Active Substance: OXAZEPAM
     Indication: PRODUCT USED FOR UNKNOWN INDICATION
     Route: 064
  2. DEPAKOTE [Suspect]
     Active Substance: DIVALPROEX SODIUM
     Indication: BIPOLAR DISORDER
     Route: 064
  3. EPITOMAX [Suspect]
     Active Substance: TOPIRAMATE
     Indication: BIPOLAR DISORDER
     Route: 064
  4. FOLIC ACID. [Concomitant]
     Active Substance: FOLIC ACID
     Indication: PRODUCT USED FOR UNKNOWN INDICATION
     Route: 064
  5. STABLON [Suspect]
     Active Substance: TIANEPTINE
     Indication: BIPOLAR DISORDER
     Route: 048
  6. ALCOHOL. [Suspect]
     Active Substance: ALCOHOL
     Indication: PRODUCT USED FOR UNKNOWN INDICATION
     Dosage: PARENT DOSING (FROM JUL-SEP (YEAR UNSPECIFIED))
     Route: 064

REACTIONS (5)
  - Microcephaly [Unknown]
  - Foetal growth restriction [Unknown]
  - Foetal alcohol syndrome [Unknown]
  - Foetal exposure during pregnancy [Recovered/Resolved]
  - Congenital nose malformation [Unknown]

NARRATIVE: CASE EVENT DATE: 2013
